FAERS Safety Report 14475661 (Version 3)
Quarter: 2019Q4

REPORT INFORMATION
  Report Type: Report from Study
  Country: US (occurrence: US)
  Receive Date: 20180201
  Receipt Date: 20191017
  Transmission Date: 20200122
  Serious: Yes (Hospitalization)
  Sender: FDA-Public Use
  Company Number: US-TAKEDA-2018TUS002703

PATIENT
  Sex: Male

DRUGS (8)
  1. PONATINIB [Suspect]
     Active Substance: PONATINIB
     Indication: CHRONIC MYELOID LEUKAEMIA
     Dosage: 15 MG, QD
     Route: 048
     Dates: start: 20170223
  2. POTASSIUM CHLORIDE. [Concomitant]
     Active Substance: POTASSIUM CHLORIDE
     Dosage: UNK
  3. GABAPENTIN. [Concomitant]
     Active Substance: GABAPENTIN
     Dosage: UNK
  4. VITAMIN C [Concomitant]
     Active Substance: ASCORBIC ACID
     Dosage: UNK
  5. METHENAMINE [Concomitant]
     Active Substance: METHENAMINE
     Dosage: UNK
  6. MANDELATE CALCIUM [Concomitant]
     Dosage: UNK
  7. WELLBUTRIN [Concomitant]
     Active Substance: BUPROPION HYDROCHLORIDE
     Dosage: UNK
  8. VITAMIN D3 [Concomitant]
     Active Substance: CHOLECALCIFEROL
     Dosage: UNK

REACTIONS (5)
  - Sinusitis [Unknown]
  - Somnolence [Unknown]
  - Muscle spasms [Unknown]
  - Memory impairment [Unknown]
  - Respiratory tract infection [Unknown]
